FAERS Safety Report 4497383-3 (Version None)
Quarter: 2004Q4

REPORT INFORMATION
  Report Type: 
  Country: None (occurrence: None)
  Receive Date: 20041104
  Receipt Date: 20041022
  Transmission Date: 20050328
  Serious: Yes (Hospitalization)
  Sender: FDA-Public Use
  Company Number: 2004083690

PATIENT
  Sex: Female

DRUGS (5)
  1. AZITHROMYCIN [Suspect]
     Indication: ILL-DEFINED DISORDER
  2. AZITHROMYCIN [Suspect]
     Indication: SINUSITIS
  3. AMOXICILLIN W/CLAVULANATE POTASSIUM (AMOXICILLIIN, CLAVULANATE POTASSI [Suspect]
     Indication: SINUSITIS
  4. CEFUROXIME [Suspect]
     Indication: SINUSITIS
     Dosage: ORAL
     Route: 048
  5. CLARITHROMYCIN [Suspect]
     Indication: SINUSITIS

REACTIONS (17)
  - AMNESTIC DISORDER [None]
  - DERMATITIS CONTACT [None]
  - DRUG INEFFECTIVE [None]
  - DRUG INTOLERANCE [None]
  - EOSINOPHILIA [None]
  - HAEMATOCRIT DECREASED [None]
  - HAEMOGLOBIN DECREASED [None]
  - HYPERSENSITIVITY [None]
  - LEUKOCYTOSIS [None]
  - MYCOPLASMA SEROLOGY POSITIVE [None]
  - PALLOR [None]
  - RENAL FAILURE [None]
  - RENAL INTERSTITIAL FIBROSIS [None]
  - SINUSITIS [None]
  - TUBULOINTERSTITIAL NEPHRITIS [None]
  - URTICARIA [None]
  - VOMITING [None]
